FAERS Safety Report 9896163 (Version 1)
Quarter: 2014Q1

REPORT INFORMATION
  Report Type: Spontaneous
  Country: US (occurrence: US)
  Receive Date: 20140213
  Receipt Date: 20140213
  Transmission Date: 20141002
  Serious: No
  Sender: FDA-Public Use
  Company Number: US-BRISTOL-MYERS SQUIBB COMPANY-17319211

PATIENT
  Age: 62 Year
  Sex: Female
  Weight: 112.92 kg

DRUGS (4)
  1. ABATACEPT SUBQ INJECTION 125MG/ML [Suspect]
     Indication: RHEUMATOID ARTHRITIS
     Dosage: 1DF= 125MG/ML?RECENT DOSE 20JAN13
     Route: 058
  2. PREDNISONE [Suspect]
  3. ZANTAC [Concomitant]
  4. BABY ASPIRIN [Concomitant]

REACTIONS (2)
  - Herpes zoster [Unknown]
  - Weight increased [Unknown]
